FAERS Safety Report 6199267-1 (Version None)
Quarter: 2009Q2

REPORT INFORMATION
  Report Type: 
  Country: None (occurrence: None)
  Receive Date: 20090519
  Receipt Date: 20090519
  Transmission Date: 20091009
  Serious: Yes (Other)
  Sender: FDA-Public Use
  Company Number: None

PATIENT
  Age: 62 Year
  Sex: Female
  Weight: 52 kg

DRUGS (2)
  1. VISICOL [Suspect]
     Indication: BOWEL PREPARATION
     Dosage: 3 TAB Q15 MIN TOTAL 20 PO
     Route: 048
     Dates: start: 20090511, end: 20090512
  2. FLEETS ENEMA [Suspect]
     Indication: BOWEL PREPARATION
     Dosage: FLEETS ENEMA X2 RECTAL
     Route: 054
     Dates: start: 20090512, end: 20090512

REACTIONS (6)
  - GASTROINTESTINAL EROSION [None]
  - HYPERPHOSPHATAEMIA [None]
  - INTESTINAL PERFORATION [None]
  - PERITONITIS [None]
  - REFUSAL OF TREATMENT BY PATIENT [None]
  - SEPTIC SHOCK [None]
